FAERS Safety Report 18500245 (Version 1)
Quarter: 2020Q4

REPORT INFORMATION
  Report Type: Spontaneous
  Country: US (occurrence: US)
  Receive Date: 20201113
  Receipt Date: 20201113
  Transmission Date: 20210114
  Serious: No
  Sender: FDA-Public Use
  Company Number: US-ASTRAZENECA-2020SF35103

PATIENT
  Age: 27 Year
  Sex: Female
  Weight: 109.8 kg

DRUGS (4)
  1. LISINOPRIL. [Concomitant]
     Active Substance: LISINOPRIL
     Indication: BLOOD PRESSURE ABNORMAL
  2. LOSARTIN [Concomitant]
     Active Substance: LOSARTAN
     Indication: BLOOD PRESSURE ABNORMAL
  3. BYDUREON BCISE [Suspect]
     Active Substance: EXENATIDE
     Indication: BLOOD GLUCOSE ABNORMAL
     Route: 058
     Dates: start: 2016
  4. BYDUREON BCISE [Suspect]
     Active Substance: EXENATIDE
     Indication: RENAL DISORDER
     Route: 058
     Dates: start: 2016

REACTIONS (5)
  - Feeling abnormal [Unknown]
  - Product dose omission issue [Unknown]
  - Device leakage [Unknown]
  - Weight decreased [Unknown]
  - Product use issue [Unknown]

NARRATIVE: CASE EVENT DATE: 2016
